FAERS Safety Report 4526405-6 (Version None)
Quarter: 2004Q4

REPORT INFORMATION
  Report Type: 
  Country: None (occurrence: None)
  Receive Date: 20041214
  Receipt Date: 20040819
  Transmission Date: 20050328
  Serious: Yes (Hospitalization)
  Sender: FDA-Public Use
  Company Number: DE-ROCHE-382537

PATIENT
  Age: 73 Year
  Sex: Female
  Weight: 70 kg

DRUGS (18)
  1. CAPECITABINE [Suspect]
     Dosage: ACTUAL DOSE WAS 1650 MG TWICE DAILY GIVEN FROM DAYS ONE TO FOURTEEN OF A THREE WEEK CYCLE.
     Route: 048
     Dates: start: 20040806, end: 20040827
  2. CAPECITABINE [Suspect]
     Route: 048
     Dates: end: 20041112
  3. PLACEBO [Suspect]
     Route: 042
     Dates: start: 20040806, end: 20040827
  4. PLACEBO [Suspect]
     Route: 042
     Dates: end: 20041109
  5. OXALIPLATIN [Suspect]
     Dosage: ACTUAL DOSE WAS 225 MG.
     Route: 042
     Dates: start: 20040806, end: 20040827
  6. OXALIPLATIN [Suspect]
     Route: 042
     Dates: end: 20041109
  7. GABAPENTIN [Concomitant]
     Dates: start: 20040730
  8. DEXAMETHASONE [Concomitant]
     Dates: start: 20040730
  9. FENTANYL [Concomitant]
     Dates: start: 20040730
  10. DOXEPIN HCL [Concomitant]
     Dates: start: 20040726
  11. VALDECOXIB [Concomitant]
     Dates: start: 20040730
  12. PANTOPRAZOL [Concomitant]
     Dates: end: 20041116
  13. ALIZAPRIDE [Concomitant]
     Dates: start: 20040806
  14. DIMENHYDRINATE [Concomitant]
     Dates: start: 20040806
  15. FENTANYL [Concomitant]
  16. NYSTATIN [Concomitant]
     Dates: start: 20040806
  17. KAMILLAN LIQUIDUM [Concomitant]
     Dates: start: 20040806
  18. FRAXIPARIN [Concomitant]

REACTIONS (6)
  - CONFUSIONAL STATE [None]
  - FALL [None]
  - ILEUS [None]
  - METASTATIC NEOPLASM [None]
  - RADIUS FRACTURE [None]
  - ULNA FRACTURE [None]
